FAERS Safety Report 5850926-7 (Version None)
Quarter: 2008Q3

REPORT INFORMATION
  Report Type: 
  Country: None (occurrence: None)
  Receive Date: 20080820
  Receipt Date: 20080812
  Transmission Date: 20090109
  Serious: Yes (Other)
  Sender: FDA-Public Use
  Company Number: PHHY2008JP18345

PATIENT
  Age: 78 Year
  Sex: Female

DRUGS (1)
  1. LAMISIL [Suspect]
     Dosage: UNK
     Route: 048
     Dates: start: 20080601, end: 20080701

REACTIONS (4)
  - BACK PAIN [None]
  - BONE DENSITY DECREASED [None]
  - BONE DISORDER [None]
  - OSTEOPOROSIS [None]
